FAERS Safety Report 15348817 (Version 2)
Quarter: 2018Q4

REPORT INFORMATION
  Report Type: Spontaneous
  Country: FR (occurrence: FR)
  Receive Date: 20180904
  Receipt Date: 20181001
  Transmission Date: 20190204
  Serious: Yes (Hospitalization)
  Sender: FDA-Public Use
  Company Number: FR-OTSUKA-2018_029833

PATIENT
  Age: 44 Year
  Sex: Male
  Weight: 114 kg

DRUGS (3)
  1. ABILIFY [Suspect]
     Active Substance: ARIPIPRAZOLE
     Indication: BIPOLAR DISORDER
     Dosage: 15 MG, QD
     Route: 005
     Dates: start: 2017
  2. DEPAMIDE [Suspect]
     Active Substance: VALPROMIDE
     Indication: BIPOLAR DISORDER
     Dosage: 1500 MG, QD (2-0-3)
     Route: 048
     Dates: start: 2013
  3. TRAMADOL. [Suspect]
     Active Substance: TRAMADOL
     Indication: TOOTHACHE
     Dosage: 200 MG, QD (1-0-1 + 50 MG)
     Route: 048
     Dates: start: 20180501, end: 20180531

REACTIONS (4)
  - Compulsive shopping [Recovered/Resolved]
  - Decreased appetite [Recovered/Resolved]
  - Incorrect route of product administration [Unknown]
  - Affective disorder [Recovered/Resolved]

NARRATIVE: CASE EVENT DATE: 2017
